FAERS Safety Report 4309038-6 (Version None)
Quarter: 2004Q1

REPORT INFORMATION
  Report Type: 
  Country: None (occurrence: None)
  Receive Date: 20040301
  Receipt Date: 20040126
  Transmission Date: 20041129
  Serious: Yes (Life-Threatening, Hospitalization)
  Sender: FDA-Public Use
  Company Number: A01200400448

PATIENT
  Age: 75 Year
  Sex: Male

DRUGS (8)
  1. ARIXTRA [Suspect]
     Indication: HIP ARTHROPLASTY
     Dosage: 2.5 MG OD, SUBCUTANEOUS
     Route: 058
     Dates: start: 20040113, end: 20040116
  2. ARIXTRA [Suspect]
     Indication: THROMBOSIS PROPHYLAXIS
     Dosage: 2.5 MG OD, SUBCUTANEOUS
     Route: 058
     Dates: start: 20040113, end: 20040116
  3. DILUTOL (TORASEMIDE) [Concomitant]
  4. AMIODARONE HCL [Concomitant]
  5. AMOXICILLIN AND CLAVULANATE POTASSIUM [Concomitant]
  6. OMEPRAZOLE [Concomitant]
  7. NOLOTIL (METAMIZOLE MAGNESIUM) [Concomitant]
  8. ADOLONTA (TRAMADOL HYDROCHLORIDE) [Concomitant]

REACTIONS (4)
  - DEPRESSED LEVEL OF CONSCIOUSNESS [None]
  - PULMONARY HAEMORRHAGE [None]
  - URETHRAL HAEMORRHAGE [None]
  - URETHRAL INJURY [None]
